FAERS Safety Report 8567425-4 (Version None)
Quarter: 2012Q3

REPORT INFORMATION
  Report Type: 
  Country: None (occurrence: None)
  Receive Date: 20120803
  Receipt Date: 20120731
  Transmission Date: 20120928
  Serious: Yes (Hospitalization, Other)
  Sender: FDA-Public Use
  Company Number: PHFR2011GB04591

PATIENT
  Sex: Female

DRUGS (6)
  1. CLOZARIL [Suspect]
     Dosage: 400 MG, DAILY
     Route: 048
     Dates: start: 20100101
  2. CLOZARIL [Suspect]
     Dosage: 400 MG, DAILY
     Route: 048
     Dates: start: 20090101
  3. ARIPIPRAZOLE [Concomitant]
     Indication: PSYCHOTIC DISORDER
     Dosage: 5 MG, DAILY
     Route: 048
     Dates: start: 20120607
  4. CLOZARIL [Suspect]
     Indication: SCHIZOAFFECTIVE DISORDER
     Dosage: 550 MG/ DAY
     Route: 048
     Dates: start: 20070914
  5. FLUOXETINE HCL [Concomitant]
     Indication: DEPRESSION
     Dosage: 60 MG, DAILY
     Route: 048
     Dates: start: 20110607
  6. VANCOMYCIN [Concomitant]
     Indication: EAR INFECTION
     Dosage: UNK UKN, UNK
     Route: 048
     Dates: start: 20120410, end: 20120417

REACTIONS (10)
  - LOWER RESPIRATORY TRACT INFECTION [None]
  - CELLULITIS [None]
  - BRONCHITIS [None]
  - OTITIS EXTERNA [None]
  - NEUTROPHIL COUNT INCREASED [None]
  - URINARY INCONTINENCE [None]
  - WHITE BLOOD CELL COUNT INCREASED [None]
  - SKIN INFECTION [None]
  - PSORIASIS [None]
  - ANGINA PECTORIS [None]
